FAERS Safety Report 9416727 (Version 1)
Quarter: 2013Q3

REPORT INFORMATION
  Report Type: Spontaneous
  Country: US (occurrence: None)
  Receive Date: 20130722
  Receipt Date: 20130722
  Transmission Date: 20140515
  Serious: Yes (Life-Threatening, Hospitalization)
  Sender: FDA-Public Use
  Company Number: DAV-AE-DIA-13-08

PATIENT
  Age: 30 Year
  Sex: Male

DRUGS (5)
  1. DIAZEPAM [Suspect]
     Indication: SUICIDE ATTEMPT
     Dosage: MASSIVE QUANTITY, UNKNOWN
  2. MOCLOBEMIDE [Concomitant]
  3. TRAZODONE [Concomitant]
  4. VENLAFAXINE [Concomitant]
  5. ZOLPIDEM [Concomitant]

REACTIONS (3)
  - Serotonin syndrome [None]
  - Suicide attempt [None]
  - Overdose [None]
